FAERS Safety Report 8598910-7 (Version None)
Quarter: 2012Q3

REPORT INFORMATION
  Report Type: 
  Country: None (occurrence: None)
  Receive Date: 20120816
  Receipt Date: 20120812
  Transmission Date: 20120928
  Serious: Yes (Other)
  Sender: FDA-Public Use
  Company Number: US-BAYER-2012-082402

PATIENT
  Age: 59 Year
  Sex: Male
  Weight: 102.4 kg

DRUGS (5)
  1. ASPIRIN [Concomitant]
  2. ASPIRIN [Suspect]
     Indication: ANALGESIC THERAPY
     Dosage: DOSE AS USED: 2
     Route: 048
  3. ALEVE-D SINUS + COLD [Concomitant]
  4. ALKA-SELTZER PLUS FLU [Concomitant]
  5. ASPIRIN [Suspect]
     Indication: ANALGESIC THERAPY
     Dosage: 325 MG, PRN
     Route: 048
     Dates: start: 20060101, end: 20060101

REACTIONS (2)
  - CHOKING [None]
  - BLEEDING TIME ABNORMAL [None]
